FAERS Safety Report 7624299-3 (Version None)
Quarter: 2011Q3

REPORT INFORMATION
  Report Type: 
  Country: None (occurrence: None)
  Receive Date: 20110701
  Receipt Date: 20100709
  Transmission Date: 20111222
  Serious: Yes (Other)
  Sender: FDA-Public Use
  Company Number: 7010754

PATIENT
  Age: 32 Year
  Sex: Female
  Weight: 64 kg

DRUGS (5)
  1. VITAMIN D [Concomitant]
  2. OMEGA-3-ACID ETHYL ESTERS (LOVAZA) [Concomitant]
  3. B-12 (CYANOCOBALAMIN) [Concomitant]
  4. GABAPENTIN [Concomitant]
  5. REBIF [Suspect]
     Indication: MULTIPLE SCLEROSIS
     Dosage: 44 MCG, 3 IN 1 WK, SUBCUTANEOUS, 22 MCG, 3 IN 1 WK, SUBCUTANEOUS
     Route: 058
     Dates: start: 20091013

REACTIONS (3)
  - RASH [None]
  - MULTIPLE SCLEROSIS RELAPSE [None]
  - BACTERIAL INFECTION [None]
